FAERS Safety Report 8623884-X (Version None)
Quarter: 2012Q3

REPORT INFORMATION
  Report Type: 
  Country: None (occurrence: None)
  Receive Date: 20120827
  Receipt Date: 20120815
  Transmission Date: 20120928
  Serious: Yes (Hospitalization)
  Sender: FDA-Public Use
  Company Number: IL-ELI_LILLY_AND_COMPANY-IL201208006388

PATIENT
  Sex: Female
  Weight: 100 kg

DRUGS (9)
  1. VITAMIN D [Concomitant]
     Dosage: UNK
  2. VITACAL                            /01535001/ [Concomitant]
     Dosage: UNK
  3. CYMBALTA [Concomitant]
     Dosage: UNK
  4. PAXETIL [Concomitant]
     Dosage: UNK
  5. MICROPIRIN [Concomitant]
     Dosage: UNK
  6. FORTEO [Suspect]
     Indication: OSTEOPOROSIS
     Dosage: 20 UG, QD
     Route: 058
     Dates: start: 20111116
  7. FUROSEMIDE [Concomitant]
     Dosage: UNK
  8. SIMVASTATIN [Concomitant]
     Dosage: UNK
  9. LANTON [Concomitant]
     Dosage: UNK

REACTIONS (1)
  - ASTHMA [None]
